FAERS Safety Report 14368035 (Version 1)
Quarter: 2018Q1

REPORT INFORMATION
  Report Type: Spontaneous
  Country: US (occurrence: US)
  Receive Date: 20180109
  Receipt Date: 20180109
  Transmission Date: 20180509
  Serious: Yes (Hospitalization)
  Sender: FDA-Public Use
  Company Number: None

PATIENT
  Age: 60 Year
  Sex: Female
  Weight: 135 kg

DRUGS (4)
  1. MULTI [Concomitant]
  2. CYMBALTA [Suspect]
     Active Substance: DULOXETINE HYDROCHLORIDE
     Indication: PAIN
  3. RAMIPRIL. [Concomitant]
     Active Substance: RAMIPRIL
  4. VITAMIN D [Concomitant]
     Active Substance: CHOLECALCIFEROL

REACTIONS (6)
  - Suicidal behaviour [None]
  - Cerebral disorder [None]
  - Drug withdrawal syndrome [None]
  - Anxiety [None]
  - Pain [None]
  - Hypertension [None]
